FAERS Safety Report 8458218-7 (Version None)
Quarter: 2012Q2

REPORT INFORMATION
  Report Type: 
  Country: None (occurrence: None)
  Receive Date: 20120622
  Receipt Date: 20120614
  Transmission Date: 20120825
  Serious: Yes (Hospitalization)
  Sender: FDA-Public Use
  Company Number: US-US-EMD SERONO, INC.-7135161

PATIENT
  Sex: Male
  Weight: 98 kg

DRUGS (5)
  1. TEMAZEPAM [Concomitant]
     Indication: INSOMNIA
  2. REBIF [Suspect]
     Indication: RELAPSING-REMITTING MULTIPLE SCLEROSIS
     Route: 058
     Dates: start: 20110301
  3. ACETAMINOPHEN [Concomitant]
     Indication: PREMEDICATION
  4. REBIF [Suspect]
     Route: 058
  5. IBUPROFEN (ADVIL) [Suspect]
     Indication: INFLUENZA LIKE ILLNESS
     Dates: start: 20111201

REACTIONS (9)
  - GASTRIC ULCER [None]
  - COORDINATION ABNORMAL [None]
  - MUSCULOSKELETAL PAIN [None]
  - MULTIPLE SCLEROSIS RELAPSE [None]
  - VISION BLURRED [None]
  - FATIGUE [None]
  - DRUG HYPERSENSITIVITY [None]
  - HYPOVOLAEMIA [None]
  - INJECTION SITE REACTION [None]
